FAERS Safety Report 9140704 (Version 3)
Quarter: 2014Q2

REPORT INFORMATION
  Report Type: Spontaneous
  Country: US (occurrence: US)
  Receive Date: 20130305
  Receipt Date: 20140602
  Transmission Date: 20141212
  Serious: Yes (Hospitalization, Disabling, Other)
  Sender: FDA-Public Use
  Company Number: US-009507513-1303USA001005

PATIENT
  Sex: Male

DRUGS (2)
  1. PROPECIA [Suspect]
     Indication: ANDROGENETIC ALOPECIA
     Dosage: UNK
     Route: 048
     Dates: start: 200006, end: 200101
  2. PROPECIA [Suspect]
     Dosage: UNK
     Route: 048
     Dates: end: 200401

REACTIONS (14)
  - Leg amputation [Not Recovered/Not Resolved]
  - Pneumonia [Unknown]
  - Accident [Unknown]
  - Erectile dysfunction [Not Recovered/Not Resolved]
  - Cognitive disorder [Unknown]
  - Sexual dysfunction [Unknown]
  - Arthropathy [Unknown]
  - Road traffic accident [Unknown]
  - Injury [Unknown]
  - Haematochezia [Unknown]
  - Rotator cuff syndrome [Unknown]
  - Abscess [Unknown]
  - Muscle spasms [Unknown]
  - Gastrooesophageal reflux disease [Not Recovered/Not Resolved]
